FAERS Safety Report 24057200 (Version 1)
Quarter: 2024Q3

REPORT INFORMATION
  Report Type: Spontaneous
  Country: US (occurrence: US)
  Receive Date: 20240706
  Receipt Date: 20240706
  Transmission Date: 20241016
  Serious: Yes (Death, Hospitalization)
  Sender: AMGEN
  Company Number: US-AMGEN-USASP2024130022

PATIENT

DRUGS (1)
  1. PREDNISONE [Suspect]
     Active Substance: PREDNISONE
     Indication: Pneumonia
     Dosage: AT LEAST 20 MG OF PREDNISONE A DAY OR ITS EQUIVALENT FOR 14 DAYS OR MORE, QD
     Route: 065

REACTIONS (6)
  - Death [Fatal]
  - Pneumonia [Unknown]
  - Influenza virus test positive [Unknown]
  - Staphylococcus test positive [Unknown]
  - Moraxella test positive [Unknown]
  - Streptococcus test positive [Unknown]
